FAERS Safety Report 6183544-4 (Version None)
Quarter: 2009Q2

REPORT INFORMATION
  Report Type: 
  Country: None (occurrence: None)
  Receive Date: 20090508
  Receipt Date: 20090429
  Transmission Date: 20091009
  Serious: Yes (Hospitalization, Other)
  Sender: FDA-Public Use
  Company Number: GB-RANBAXY-2009RR-23826

PATIENT
  Age: 84 Year
  Sex: Female

DRUGS (6)
  1. RANITIDINE [Suspect]
     Indication: DYSPEPSIA
     Dosage: 150 MG, UNK
     Route: 048
  2. ASPIRIN [Concomitant]
     Dosage: 75 MG, UNK
     Route: 048
  3. CO-AMILOFRUSE [Concomitant]
     Route: 048
  4. GLUCOSAMINE [Concomitant]
     Dosage: 750 MG, UNK
     Route: 048
  5. NIFEDIPINE [Concomitant]
     Dosage: 60 MG, UNK
     Route: 048
  6. OMEPRAZOLE [Concomitant]
     Dosage: 20 MG, UNK
     Route: 048

REACTIONS (1)
  - HALLUCINATIONS, MIXED [None]
